FAERS Safety Report 17418670 (Version 1)
Quarter: 2020Q1

REPORT INFORMATION
  Report Type: Spontaneous
  Country: US (occurrence: US)
  Receive Date: 20200131
  Receipt Date: 20200131
  Transmission Date: 20200409
  Serious: No
  Sender: FDA-Public Use
  Company Number: None

PATIENT

DRUGS (1)
  1. BOTOX [Suspect]
     Active Substance: ONABOTULINUMTOXINA
     Indication: CRANIOCEREBRAL INJURY
     Dosage: ?          OTHER STRENGTH:200 UNIT;OTHER DOSE:400UNITS; 400 IU IM EVERT 3 HRS?
     Route: 030
     Dates: start: 202001

REACTIONS (2)
  - Off label use [None]
  - Product administered to patient of inappropriate age [None]

NARRATIVE: CASE EVENT DATE: 20200131
